FAERS Safety Report 13355374 (Version 3)
Quarter: 2017Q2

REPORT INFORMATION
  Report Type: Spontaneous
  Country: FI (occurrence: FI)
  Receive Date: 20170321
  Receipt Date: 20170411
  Transmission Date: 20170830
  Serious: Yes (Other)
  Sender: FDA-Public Use
  Company Number: FI-009507513-1703FIN008433

PATIENT
  Age: 52 Year
  Sex: Male

DRUGS (3)
  1. KEYTRUDA [Suspect]
     Active Substance: PEMBROLIZUMAB
     Indication: MALIGNANT MELANOMA
     Dosage: 2 MG/KG, 180 MG Q3W (THEN ADJUSTED TO 170MG)
     Route: 042
     Dates: start: 201603, end: 201608
  2. KEYTRUDA [Suspect]
     Active Substance: PEMBROLIZUMAB
     Dosage: 2 MG/KG, 180 MG Q3W (THEN ADJUSTED TO 170MG)
     Route: 042
  3. KEYTRUDA [Suspect]
     Active Substance: PEMBROLIZUMAB
     Dosage: 2 MG/KG, 180 MG Q3W (THEN ADJUSTED TO 170MG)
     Route: 042

REACTIONS (7)
  - Weight decreased [Unknown]
  - Hypokalaemia [Recovered/Resolved]
  - Cerebral haemorrhage [Recovered/Resolved]
  - Pulmonary embolism [Recovered/Resolved]
  - Malignant neoplasm progression [Unknown]
  - Diarrhoea [Recovered/Resolved]
  - Meningitis [Recovered/Resolved]

NARRATIVE: CASE EVENT DATE: 201607
